FAERS Safety Report 5009762-6 (Version None)
Quarter: 2006Q2

REPORT INFORMATION
  Report Type: 
  Country: None (occurrence: None)
  Receive Date: 20060524
  Receipt Date: 20060517
  Transmission Date: 20061013
  Serious: Yes (Hospitalization)
  Sender: FDA-Public Use
  Company Number: US-ROCHE-448694

PATIENT
  Age: 65 Year
  Sex: Female

DRUGS (4)
  1. PEGASYS [Suspect]
     Route: 065
     Dates: start: 20060303, end: 20060310
  2. PEGASYS [Suspect]
     Route: 065
     Dates: start: 20060312
  3. COPEGUS [Suspect]
     Route: 065
     Dates: start: 20060303, end: 20060310
  4. COPEGUS [Suspect]
     Route: 065
     Dates: start: 20060312

REACTIONS (11)
  - ANAEMIA [None]
  - CHEST DISCOMFORT [None]
  - DIZZINESS [None]
  - FATIGUE [None]
  - MOOD SWINGS [None]
  - NAUSEA [None]
  - PAIN [None]
  - RECTAL HAEMORRHAGE [None]
  - SYNCOPE [None]
  - TREATMENT NONCOMPLIANCE [None]
  - TREMOR [None]
